FAERS Safety Report 10128138 (Version 1)
Quarter: 2014Q2

REPORT INFORMATION
  Report Type: Report from Study
  Country: FR (occurrence: FR)
  Receive Date: 20140428
  Receipt Date: 20140428
  Transmission Date: 20141212
  Serious: Yes (Death, Other)
  Sender: FDA-Public Use
  Company Number: FR-ROCHE-1385208

PATIENT
  Sex: 0

DRUGS (2)
  1. TENECTEPLASE [Suspect]
     Indication: PULMONARY EMBOLISM
     Dosage: 30-50 MG
     Route: 040
  2. HEPARIN [Concomitant]

REACTIONS (4)
  - Haemorrhagic stroke [Fatal]
  - Haemorrhage [Unknown]
  - Haemorrhage [Unknown]
  - Ischaemic stroke [Unknown]
